FAERS Safety Report 5747561-8 (Version None)
Quarter: 2008Q2

REPORT INFORMATION
  Report Type: 
  Country: None (occurrence: None)
  Receive Date: 20080523
  Receipt Date: 20080519
  Transmission Date: 20081010
  Serious: Yes (Hospitalization, Other)
  Sender: FDA-Public Use
  Company Number: US-BAYER-200811958BCC

PATIENT
  Age: 70 Year
  Sex: Female
  Weight: 80 kg

DRUGS (5)
  1. ASPIRIN [Suspect]
     Indication: ISCHAEMIC HEART DISEASE PROPHYLAXIS
     Dosage: TOTAL DAILY DOSE: 81 MG  UNIT DOSE: 81 MG
     Route: 048
  2. LEVOTHYROXINE SODIUM [Concomitant]
  3. POTASSIUM CHLORIDE [Concomitant]
  4. ALPRAZOLAM [Concomitant]
  5. AKYMA IRON PILL [Concomitant]

REACTIONS (1)
  - GASTROINTESTINAL ULCER PERFORATION [None]
